FAERS Safety Report 4301666-7 (Version None)
Quarter: 2004Q1

REPORT INFORMATION
  Report Type: 
  Country: None (occurrence: None)
  Receive Date: 20040218
  Receipt Date: 20031212
  Transmission Date: 20041129
  Serious: Yes (Hospitalization)
  Sender: FDA-Public Use
  Company Number: 2003-12-0896

PATIENT
  Age: 52 Year
  Sex: Male
  Weight: 103.4201 kg

DRUGS (8)
  1. PEG-INTRON [Suspect]
     Indication: HEPATITIS C
     Dosage: SEE IMAGE
     Route: 058
     Dates: start: 20021031, end: 20030910
  2. PEG-INTRON [Suspect]
     Indication: HEPATITIS C
     Dosage: SEE IMAGE
     Route: 058
     Dates: start: 20021031, end: 20030930
  3. PEG-INTRON [Suspect]
     Indication: HEPATITIS C
     Dosage: SEE IMAGE
     Route: 058
     Dates: start: 20030917, end: 20030930
  4. REBETOL [Suspect]
     Indication: HEPATITIS C
     Dosage: 200 MG CAP ORAL
     Route: 048
     Dates: start: 20021031, end: 20030930
  5. VIOXX [Concomitant]
  6. DIOVAN TABLETS [Concomitant]
  7. AMBIENH (ZOLPIDEM TARTRATE) TABLETS [Concomitant]
  8. MULTI-VITAMINS [Concomitant]

REACTIONS (4)
  - NAUSEA [None]
  - TENSION HEADACHE [None]
  - THROMBOCYTOPENIA [None]
  - VOMITING [None]
